FAERS Safety Report 7632082-8 (Version None)
Quarter: 2011Q3

REPORT INFORMATION
  Report Type: 
  Country: None (occurrence: None)
  Receive Date: 20110725
  Receipt Date: 20110711
  Transmission Date: 20111222
  Serious: Yes (Hospitalization, Other)
  Sender: FDA-Public Use
  Company Number: DE-UCBSA-037123

PATIENT
  Sex: Male

DRUGS (16)
  1. ALENDRONATE/CHOLECALCIFEROL [Concomitant]
     Dosage: 70/2800; ON SATURDAYS
  2. IBUPROFEN [Concomitant]
  3. ALLOPURINOL [Concomitant]
  4. AMOXICOMP [Concomitant]
     Dosage: 875/125 MG
     Dates: end: 20110701
  5. ALENDRONATE/CHOLECALCIFEROL [Concomitant]
     Dosage: 70/2800; ON SATURDAYS
  6. CIMZIA [Suspect]
     Indication: RHEUMATOID ARTHRITIS
     Dosage: 200 MG
     Route: 058
     Dates: start: 20100901, end: 20110501
  7. METOPROLOL TARTRATE [Concomitant]
  8. METHOTREXATE SODIUM [Concomitant]
     Dosage: ON THURSDAYS
  9. MOVIPREP [Concomitant]
     Dosage: 1 BAG
  10. SIMVASTATIN [Concomitant]
  11. PREDNISOLONE [Concomitant]
  12. CODICAPS [Concomitant]
  13. ASPIRIN [Concomitant]
  14. CALCIUM CARBONATE [Concomitant]
  15. PANTOPRAZOLE [Concomitant]
  16. FOLSAN [Concomitant]
     Dosage: ON FRIDAYS

REACTIONS (4)
  - PANCYTOPENIA [None]
  - ERYSIPELAS [None]
  - LYMPHOEDEMA [None]
  - TUBERCULOSIS [None]
